FAERS Safety Report 10214643 (Version 3)
Quarter: 2014Q3

REPORT INFORMATION
  Report Type: Report from Study
  Country: JP (occurrence: JP)
  Receive Date: 20140603
  Receipt Date: 20140827
  Transmission Date: 20150326
  Serious: Yes (Hospitalization, Other)
  Sender: FDA-Public Use
  Company Number: JP-JNJFOC-20140519903

PATIENT
  Age: 53 Year
  Sex: Male

DRUGS (19)
  1. PARIET [Concomitant]
     Active Substance: RABEPRAZOLE SODIUM
     Indication: GASTRITIS
     Route: 048
     Dates: start: 20080924, end: 20120331
  2. NORVIR [Suspect]
     Active Substance: RITONAVIR
     Indication: HIV INFECTION
     Route: 048
     Dates: start: 20110608
  3. LIVACT [Concomitant]
     Indication: LIVER DISORDER
     Dosage: 4.5 G
     Route: 048
     Dates: start: 20090803
  4. TRUVADA [Suspect]
     Active Substance: EMTRICITABINE\TENOFOVIR DISOPROXIL FUMARATE
     Indication: HIV INFECTION
     Route: 048
     Dates: start: 20060401
  5. URSO [Concomitant]
     Active Substance: URSODIOL
     Indication: LIVER DISORDER
     Route: 048
     Dates: start: 20070401
  6. INTELENCE [Suspect]
     Active Substance: ETRAVIRINE
     Indication: HIV INFECTION
     Route: 048
     Dates: start: 20081011
  7. CROSS EIGHT M [Concomitant]
     Active Substance: ANTIHEMOPHILIC FACTOR HUMAN
     Indication: FACTOR VIII DEFICIENCY
     Dates: end: 20100804
  8. PARIET [Concomitant]
     Active Substance: RABEPRAZOLE SODIUM
     Indication: GASTRITIS
     Route: 048
     Dates: start: 20140319
  9. NORVIR [Suspect]
     Active Substance: RITONAVIR
     Indication: HIV INFECTION
     Route: 048
     Dates: start: 19990819
  10. NORVIR [Suspect]
     Active Substance: RITONAVIR
     Indication: HIV INFECTION
     Route: 048
     Dates: start: 20060411, end: 20110608
  11. NORVIR [Suspect]
     Active Substance: RITONAVIR
     Indication: HIV INFECTION
     Route: 048
     Dates: start: 20000401, end: 20001228
  12. NORVIR [Suspect]
     Active Substance: RITONAVIR
     Indication: HIV INFECTION
     Route: 048
     Dates: start: 19961218, end: 19970924
  13. URSO [Concomitant]
     Active Substance: URSODIOL
     Indication: LIVER DISORDER
     Route: 048
     Dates: start: 200003
  14. PREZISTA [Suspect]
     Active Substance: DARUNAVIR ETHANOLATE
     Indication: HIV INFECTION
     Route: 048
     Dates: start: 20061111
  15. CROSS EIGHT M [Concomitant]
     Active Substance: ANTIHEMOPHILIC FACTOR HUMAN
     Indication: FACTOR VIII DEFICIENCY
     Dates: start: 20080401
  16. ADVATE [Concomitant]
     Active Substance: ANTIHEMOPHILIC FACTOR, HUMAN RECOMBINANT
     Indication: FACTOR VIII DEFICIENCY
     Dosage: 1000UT
     Route: 042
     Dates: start: 20100805
  17. PARIET [Concomitant]
     Active Substance: RABEPRAZOLE SODIUM
     Indication: GASTRITIS
     Route: 048
     Dates: start: 20120401, end: 20130821
  18. ISENTRESS [Suspect]
     Active Substance: RALTEGRAVIR POTASSIUM
     Indication: HIV INFECTION
     Route: 048
     Dates: start: 20080401
  19. MUCODYNE [Concomitant]
     Active Substance: CARBOCYSTEINE
     Indication: BRONCHITIS CHRONIC
     Route: 048
     Dates: start: 20090617

REACTIONS (4)
  - Hyperbilirubinaemia [Recovered/Resolved]
  - Hepatocellular carcinoma [Recovered/Resolved]
  - Dyslipidaemia [Not Recovered/Not Resolved]
  - Hepatic cirrhosis [Not Recovered/Not Resolved]

NARRATIVE: CASE EVENT DATE: 20101026
